FAERS Safety Report 20471222 (Version 1)
Quarter: 2022Q1

REPORT INFORMATION
  Report Type: Spontaneous
  Country: US (occurrence: None)
  Receive Date: 20220211
  Receipt Date: 20220211
  Transmission Date: 20220423
  Serious: No
  Sender: FDA-Public Use
  Company Number: None

PATIENT
  Age: 76 Year
  Sex: Female

DRUGS (2)
  1. OTEZLA [Suspect]
     Active Substance: APREMILAST
     Indication: Psoriasis
     Dosage: OTHER QUANTITY : 1 TABLET;?FREQUENCY : TWICE A DAY;?
     Route: 048
     Dates: start: 202003
  2. OTEZLA [Suspect]
     Active Substance: APREMILAST
     Indication: Hidradenitis

REACTIONS (1)
  - Kidney infection [None]
